FAERS Safety Report 4817706-2 (Version None)
Quarter: 2005Q4

REPORT INFORMATION
  Report Type: 
  Country: None (occurrence: None)
  Receive Date: 20051101
  Receipt Date: 20051101
  Transmission Date: 20060501
  Serious: Yes (Hospitalization)
  Sender: FDA-Public Use
  Company Number: None

PATIENT
  Age: 52 Year
  Sex: Female

DRUGS (2)
  1. IRINOTECAN HCL [Suspect]
     Indication: LUNG NEOPLASM MALIGNANT
     Dosage: 74 MG DAY 1 + 8 IV
     Route: 042
     Dates: start: 20051001
  2. CARBOPLATIN [Suspect]
     Dosage: 510 MG DAY 1 IV
     Route: 042

REACTIONS (5)
  - DYSPNOEA [None]
  - HUMERUS FRACTURE [None]
  - OXYGEN SATURATION DECREASED [None]
  - PAIN IN EXTREMITY [None]
  - PATHOLOGICAL FRACTURE [None]
